FAERS Safety Report 20513992 (Version 1)
Quarter: 2022Q1

REPORT INFORMATION
  Report Type: Spontaneous
  Country: US (occurrence: US)
  Receive Date: 20220224
  Receipt Date: 20220224
  Transmission Date: 20220424
  Serious: No
  Sender: FDA-Public Use
  Company Number: US-AMNEAL PHARMACEUTICALS-2021-AMRX-00436

PATIENT
  Sex: Male

DRUGS (5)
  1. RYTARY [Suspect]
     Active Substance: CARBIDOPA\LEVODOPA
     Indication: Parkinson^s disease
     Dosage: 23.75/95MG 2 CAPSULES, QID
     Route: 048
     Dates: start: 20201211
  2. RYTARY [Suspect]
     Active Substance: CARBIDOPA\LEVODOPA
     Dosage: 23.75/95MG, 10 CAPSULES, DAILY
     Route: 048
  3. RYTARY [Suspect]
     Active Substance: CARBIDOPA\LEVODOPA
     Dosage: 48.75-195MG 2 CAPSULES, 4 /DAY
     Route: 048
  4. RYTARY [Suspect]
     Active Substance: CARBIDOPA\LEVODOPA
     Dosage: 61.25-245 2 CAPSULES, 3 /DAY, AT 5AM, 1PM AND 10PM
     Route: 048
     Dates: end: 20210607
  5. RYTARY [Suspect]
     Active Substance: CARBIDOPA\LEVODOPA
     Dosage: 61.25/245 MG, 8 CAPSULES DAILY
     Route: 048
     Dates: start: 20210607

REACTIONS (5)
  - Parkinson^s disease [Not Recovered/Not Resolved]
  - Dental caries [Unknown]
  - Tooth infection [Unknown]
  - Dementia [Not Recovered/Not Resolved]
  - Weight increased [Unknown]
